FAERS Safety Report 8881191 (Version 1)
Quarter: 2012Q4

REPORT INFORMATION
  Report Type: 
  Country: CA (occurrence: CA)
  Receive Date: 20121031
  Receipt Date: 20121031
  Transmission Date: 20130627
  Serious: Yes (Life-Threatening, Hospitalization, Disabling)
  Sender: FDA-Public Use
  Company Number: PHHY2012CA097257

PATIENT
  Age: 57 Year
  Sex: Female

DRUGS (9)
  1. RASILEZ [Suspect]
     Dosage: 1 DF, daily
     Route: 048
  2. IRBESARTAN SANDOZ [Suspect]
     Dosage: 1 DF, daily
     Route: 048
  3. ACETYLSALICYLIC ACID [Concomitant]
  4. APO ESOMEPRAZOLE [Concomitant]
  5. JANUVIA [Concomitant]
  6. LIPITOR [Concomitant]
  7. METFORMIN [Concomitant]
  8. NORVASC [Concomitant]
  9. VITAMIN B12 [Concomitant]

REACTIONS (1)
  - Cerebrovascular accident [Recovered/Resolved with Sequelae]
